FAERS Safety Report 21519541 (Version 1)
Quarter: 2022Q4

REPORT INFORMATION
  Report Type: Spontaneous
  Country: CN (occurrence: CN)
  Receive Date: 20221028
  Receipt Date: 20221028
  Transmission Date: 20230112
  Serious: Yes (Other)
  Sender: FDA-Public Use
  Company Number: CN-PFIZER INC-PV202200082671

PATIENT
  Age: 86 Year
  Sex: Male
  Weight: 45 kg

DRUGS (10)
  1. VORICONAZOLE [Suspect]
     Active Substance: VORICONAZOLE
     Indication: Fungal infection
     Dosage: 400 MG, 12H/TIME, FIRST DOSE
     Route: 048
     Dates: start: 201911
  2. VORICONAZOLE [Suspect]
     Active Substance: VORICONAZOLE
     Dosage: 200 MG, 12H/TIME, MAINTENANCE DOSE
     Route: 048
     Dates: start: 201911
  3. PIPERACILLIN SODIUM\TAZOBACTAM SODIUM [Concomitant]
     Active Substance: PIPERACILLIN SODIUM\TAZOBACTAM SODIUM
     Dosage: 2.5 G, 12H/TIME
     Route: 041
     Dates: start: 201911
  4. SODIUM CHLORIDE [Concomitant]
     Active Substance: SODIUM CHLORIDE
     Dosage: 100 ML, 12H/TIME
     Route: 041
     Dates: start: 201911
  5. SODIUM CHLORIDE [Concomitant]
     Active Substance: SODIUM CHLORIDE
     Dosage: 5 ML, 2X/DAY
     Dates: start: 201911
  6. BUDESONIDE [Concomitant]
     Active Substance: BUDESONIDE
     Dosage: 1 MG, 2X/DAY
     Dates: start: 201911
  7. IPRATROPIUM BROMIDE [Concomitant]
     Active Substance: IPRATROPIUM BROMIDE
     Dosage: 2 ML, 2X/DAY
     Dates: start: 201911
  8. CARBOCYSTEINE [Concomitant]
     Active Substance: CARBOCYSTEINE
     Dosage: 10 ML, 3X/DAY
     Route: 048
     Dates: start: 201911
  9. PREDNISONE ACETATE [Concomitant]
     Active Substance: PREDNISONE ACETATE
     Dosage: 60 MG, 1X/DAY
     Route: 048
     Dates: start: 201911
  10. MOXIFLOXACIN HYDROCHLORIDE [Concomitant]
     Active Substance: MOXIFLOXACIN HYDROCHLORIDE
     Dosage: 0.4 G, 1X/DAY
     Dates: start: 20191107

REACTIONS (3)
  - Hallucination [Recovered/Resolved]
  - Illusion [Recovered/Resolved]
  - Insomnia [Recovered/Resolved]

NARRATIVE: CASE EVENT DATE: 20191101
